FAERS Safety Report 9456405 (Version 1)
Quarter: 2013Q3

REPORT INFORMATION
  Report Type: Spontaneous
  Country: US (occurrence: US)
  Receive Date: 20130813
  Receipt Date: 20130813
  Transmission Date: 20140515
  Serious: No
  Sender: FDA-Public Use
  Company Number: US-MYLANLABS-2012S1020843

PATIENT
  Age: 45 Year
  Sex: Female

DRUGS (3)
  1. CLORAZEPATE DIPOTASSIUM TABLETS, USP [Suspect]
     Indication: NEURALGIA
     Dosage: TAKES 4-6 TABS DAILY
     Route: 048
  2. CLORAZEPATE DIPOTASSIUM TABLETS, USP [Suspect]
     Indication: OFF LABEL USE
     Dosage: TAKES 4-6 TABS DAILY
     Route: 048
  3. ARTHROTEC [Concomitant]
     Route: 048

REACTIONS (1)
  - Chest pain [Recovered/Resolved]
